FAERS Safety Report 8046382-3 (Version None)
Quarter: 2012Q1

REPORT INFORMATION
  Report Type: 
  Country: None (occurrence: None)
  Receive Date: 20120113
  Receipt Date: 20120106
  Transmission Date: 20120608
  Serious: Yes (Other)
  Sender: FDA-Public Use
  Company Number: US-ASTRAZENECA-2010SE34067

PATIENT
  Age: 55 Year
  Sex: Female
  Weight: 100.2 kg

DRUGS (5)
  1. XANAX [Concomitant]
  2. SEROQUEL [Suspect]
     Indication: BIPOLAR DISORDER
     Route: 048
  3. LISINOPRIL [Concomitant]
  4. PAXIL [Concomitant]
  5. PERCOCET [Concomitant]
     Indication: PAIN
     Dosage: 10/325 MG PRN

REACTIONS (12)
  - ILL-DEFINED DISORDER [None]
  - PARANOIA [None]
  - TACHYPHRENIA [None]
  - DRUG DOSE OMISSION [None]
  - FEELING ABNORMAL [None]
  - INSOMNIA [None]
  - DEPRESSION [None]
  - VISUAL IMPAIRMENT [None]
  - MYOCARDIAL INFARCTION [None]
  - PERSONALITY CHANGE [None]
  - DECREASED APPETITE [None]
  - CEREBROVASCULAR ACCIDENT [None]
